FAERS Safety Report 5131836-X (Version None)
Quarter: 2006Q4

REPORT INFORMATION
  Report Type: 
  Country: None (occurrence: None)
  Receive Date: 20061016
  Receipt Date: 20061004
  Transmission Date: 20070319
  Serious: Yes (Hospitalization, Other)
  Sender: FDA-Public Use
  Company Number: 2006123220

PATIENT
  Sex: Female

DRUGS (2)
  1. CELEBREX [Suspect]
  2. LYRICA [Suspect]
     Dosage: 50 MG
     Dates: start: 20060801

REACTIONS (5)
  - FACIAL BONES FRACTURE [None]
  - FALL [None]
  - PROTEINURIA [None]
  - RENAL IMPAIRMENT [None]
  - SYNCOPE [None]
